FAERS Safety Report 7959344-9 (Version None)
Quarter: 2011Q4

REPORT INFORMATION
  Report Type: 
  Country: None (occurrence: None)
  Receive Date: 20111206
  Receipt Date: 20111130
  Transmission Date: 20120403
  Serious: Yes (Other)
  Sender: FDA-Public Use
  Company Number: SE-PFIZER INC-2011293946

PATIENT
  Age: 44 Year
  Sex: Female

DRUGS (1)
  1. SYNAREL [Suspect]
     Dosage: 200 UG, UNK

REACTIONS (1)
  - RESPIRATORY DISTRESS [None]
